FAERS Safety Report 4761002-9 (Version None)
Quarter: 2005Q3

REPORT INFORMATION
  Report Type: 
  Country: None (occurrence: None)
  Receive Date: 20050901
  Receipt Date: 20050822
  Transmission Date: 20060218
  Serious: Yes (Other)
  Sender: FDA-Public Use
  Company Number: C-05-0040

PATIENT
  Age: 74 Year
  Sex: Female
  Weight: 59.8748 kg

DRUGS (4)
  1. ACETIC ACID OTIC SOLUTION USP 2% [Suspect]
     Indication: OTITIS EXTERNA
     Dosage: THREE DROPS IN AFFECTED EAR (S) FOUR TIMES A DAY
     Dates: start: 20050714
  2. ASPIRIN [Concomitant]
  3. DIOVAN [Concomitant]
  4. THYROID TAB [Concomitant]

REACTIONS (1)
  - APPLICATION SITE IRRITATION [None]
